FAERS Safety Report 13314141 (Version 1)
Quarter: 2017Q1

REPORT INFORMATION
  Report Type: Spontaneous
  Country: US (occurrence: US)
  Receive Date: 20170309
  Receipt Date: 20170309
  Transmission Date: 20170428
  Serious: No
  Sender: FDA-Public Use
  Company Number: US-ALK ABELLO INC-1064081

PATIENT
  Sex: Female

DRUGS (9)
  1. SHORT RAGWEED POLLEN [Concomitant]
     Active Substance: AMBROSIA ARTEMISIIFOLIA POLLEN
     Route: 058
  2. BLACK WILLOW POLLEN [Concomitant]
     Active Substance: SALIX NIGRA POLLEN
     Route: 058
  3. PENICILLIUM [Concomitant]
     Active Substance: PENICILLIUM CHRYSOGENUM VAR. CHRYSOGENUM
     Route: 058
  4. ALTERNARIA [Concomitant]
     Active Substance: ALTERNARIA ALTERNATA
     Route: 058
  5. EPICOCCUM [Concomitant]
     Active Substance: EPICOCCUM NIGRUM
     Route: 058
  6. ASPERGILLUS FUMIGATUS. [Suspect]
     Active Substance: ASPERGILLUS FUMIGATUS
     Indication: IMMUNE SYSTEM DISORDER
     Route: 058
     Dates: start: 20161206, end: 20170207
  7. HORMODENDRUM [Concomitant]
     Active Substance: CLADOSPORIUM CLADOSPORIOIDES
     Route: 058
  8. BIRCH [Concomitant]
     Active Substance: BETULA NIGRA POLLEN
     Route: 058
  9. MULBERRY [Concomitant]
     Active Substance: BROUSSONETIA PAPYRIFERA POLLEN
     Route: 058

REACTIONS (4)
  - Skin lesion [None]
  - Erythema [None]
  - Pruritus [None]
  - Rash [None]
